FAERS Safety Report 17682584 (Version 1)
Quarter: 2020Q2

REPORT INFORMATION
  Report Type: Spontaneous
  Country: CA (occurrence: CA)
  Receive Date: 20200418
  Receipt Date: 20200418
  Transmission Date: 20200714
  Serious: Yes (Other)
  Sender: FDA-Public Use
  Company Number: CA-SAMSUNG BIOEPIS-SB-2020-13061

PATIENT
  Age: 43 Year
  Sex: Female

DRUGS (2)
  1. ETANERCEPT [Suspect]
     Active Substance: ETANERCEPT
     Indication: ANKYLOSING SPONDYLITIS
     Route: 058
  2. METHOTREXATE. [Suspect]
     Active Substance: METHOTREXATE
     Indication: ARTHRITIS
     Dosage: UNKNOWN
     Route: 065

REACTIONS (6)
  - Arthralgia [Unknown]
  - Colitis ulcerative [Unknown]
  - Treatment failure [Unknown]
  - Joint swelling [Unknown]
  - Lung disorder [Unknown]
  - Cough [Unknown]
